FAERS Safety Report 7562238-4 (Version None)
Quarter: 2011Q2

REPORT INFORMATION
  Report Type: 
  Country: None (occurrence: None)
  Receive Date: 20110622
  Receipt Date: 20110608
  Transmission Date: 20111010
  Serious: Yes (Hospitalization)
  Sender: FDA-Public Use
  Company Number: US-JNJFOC-20110603328

PATIENT
  Sex: Female
  Weight: 72.58 kg

DRUGS (33)
  1. RIVAROXABAN [Suspect]
     Route: 048
     Dates: start: 20090905, end: 20110317
  2. METOPROLOL [Concomitant]
  3. ADVAIR DISKUS 100/50 [Concomitant]
  4. DALTEPARIN SODIUM [Concomitant]
  5. MORPHINE [Concomitant]
  6. NIACIN [Concomitant]
  7. ATACAND [Concomitant]
  8. CRESTOR [Concomitant]
  9. XOPENEX [Concomitant]
  10. GUAIFENESIN [Concomitant]
  11. ISOSORBIDE MONONITRATE [Concomitant]
  12. BECLOMETHASONE DIPROPIONATE [Concomitant]
  13. TRAZODONE HCL [Concomitant]
  14. VALIUM [Concomitant]
  15. CARVEDILOL [Concomitant]
  16. PLACEBO [Suspect]
     Indication: ACUTE CORONARY SYNDROME
     Route: 048
     Dates: start: 20090905, end: 20110317
  17. PLACEBO [Suspect]
     Route: 048
     Dates: start: 20090905, end: 20110317
  18. BENADRYL [Concomitant]
  19. AMLODIPINE [Concomitant]
  20. ALBUTEROL SULFATE AUTOHALER [Concomitant]
  21. ASPIRIN [Suspect]
     Indication: ACUTE CORONARY SYNDROME
     Route: 048
     Dates: start: 20100720, end: 20110318
  22. RIVAROXABAN [Suspect]
     Route: 048
     Dates: start: 20090904, end: 20090904
  23. PLACEBO [Suspect]
     Route: 048
     Dates: start: 20090904, end: 20090904
  24. LISINOPRIL [Concomitant]
  25. BUSPAR [Concomitant]
  26. RIVAROXABAN [Suspect]
     Indication: ACUTE CORONARY SYNDROME
     Route: 048
     Dates: start: 20090905, end: 20110317
  27. PLACEBO [Suspect]
     Route: 048
     Dates: start: 20090904, end: 20090904
  28. CLOPIDOGREL [Suspect]
     Indication: ACUTE CORONARY SYNDROME
     Route: 048
     Dates: start: 20090904, end: 20110318
  29. INFLUENZA VACCINE [Concomitant]
  30. CITALOPRAM HYDROBROMIDE [Concomitant]
  31. SIMVASTATIN [Concomitant]
  32. RIVAROXABAN [Suspect]
     Route: 048
     Dates: start: 20090904, end: 20090904
  33. PEPCID [Concomitant]

REACTIONS (1)
  - PERITONEAL HAEMORRHAGE [None]
